FAERS Safety Report 25789896 (Version 1)
Quarter: 2025Q3

REPORT INFORMATION
  Report Type: Spontaneous
  Country: EU (occurrence: EU)
  Receive Date: 20250911
  Receipt Date: 20250911
  Transmission Date: 20251020
  Serious: Yes (Other)
  Sender: AUROBINDO
  Company Number: EU-JNJFOC-20250205461

PATIENT
  Age: 52 Year
  Sex: Female
  Weight: 64 kg

DRUGS (9)
  1. TADALAFIL [Suspect]
     Active Substance: TADALAFIL
     Indication: Pulmonary hypertension
     Route: 065
  2. UPTRAVI [Suspect]
     Active Substance: SELEXIPAG
     Indication: Pulmonary arterial hypertension
     Dosage: 200 MICROGRAM, TWO TIMES A DAY
     Route: 048
     Dates: start: 20250131
  3. UPTRAVI [Suspect]
     Active Substance: SELEXIPAG
     Dosage: 400 MICROGRAM, TWO TIMES A DAY
     Route: 048
     Dates: start: 20250207
  4. UPTRAVI [Suspect]
     Active Substance: SELEXIPAG
     Dosage: 600 MICROGRAM, TWO TIMES A DAY
     Route: 048
     Dates: start: 20250221
  5. UPTRAVI [Suspect]
     Active Substance: SELEXIPAG
     Dosage: 800 MICROGRAM, TWO TIMES A DAY
     Route: 048
     Dates: start: 20250307
  6. UPTRAVI [Suspect]
     Active Substance: SELEXIPAG
     Dosage: 1000 MICROGRAM, TWO TIMES A DAY
     Route: 048
     Dates: start: 20250321
  7. UPTRAVI [Suspect]
     Active Substance: SELEXIPAG
     Dosage: 1200 MICROGRAM, TWO TIMES A DAY
     Route: 048
     Dates: start: 20250418
  8. UPTRAVI [Suspect]
     Active Substance: SELEXIPAG
     Dosage: 1000 MICROGRAM, TWO TIMES A DAY
     Route: 048
     Dates: start: 20250512
  9. AMBRISENTAN [Concomitant]
     Active Substance: AMBRISENTAN
     Indication: Pulmonary hypertension
     Route: 065

REACTIONS (14)
  - Headache [Not Recovered/Not Resolved]
  - Decreased appetite [Recovered/Resolved]
  - Fatigue [Recovered/Resolved]
  - Abdominal pain [Recovered/Resolved]
  - Diarrhoea [Not Recovered/Not Resolved]
  - Feeling abnormal [Recovered/Resolved]
  - Myalgia [Recovered/Resolved]
  - Brain fog [Recovered/Resolved]
  - Hot flush [Not Recovered/Not Resolved]
  - Dyspnoea [Recovering/Resolving]
  - Arthralgia [Not Recovered/Not Resolved]
  - Gastrooesophageal reflux disease [Not Recovered/Not Resolved]
  - Gingival bleeding [Recovered/Resolved with Sequelae]
  - Unevaluable event [Not Recovered/Not Resolved]

NARRATIVE: CASE EVENT DATE: 20250131
